FAERS Safety Report 15147894 (Version 2)
Quarter: 2020Q3

REPORT INFORMATION
  Report Type: Report from Study
  Country: KR (occurrence: KR)
  Receive Date: 20180716
  Receipt Date: 20180802
  Transmission Date: 20201105
  Serious: Yes (Hospitalization)
  Sender: FDA-Public Use
  Company Number: KR-ROCHE-2087380

PATIENT
  Age: 70 Year
  Sex: Female
  Weight: 52 kg

DRUGS (10)
  1. PANTOLOC [Concomitant]
     Active Substance: PANTOPRAZOLE SODIUM
     Indication: PROPHYLAXIS
     Route: 048
     Dates: start: 20171011
  2. ALECTINIB. [Suspect]
     Active Substance: ALECTINIB
     Indication: NON-SMALL CELL LUNG CANCER
     Route: 048
     Dates: start: 20180117, end: 20180131
  3. XARELTO [Concomitant]
     Active Substance: RIVAROXABAN
     Indication: PULMONARY EMBOLISM
     Route: 048
     Dates: start: 20171011
  4. ALECTINIB. [Suspect]
     Active Substance: ALECTINIB
     Dosage: THERAPY RESTARTED
     Route: 048
     Dates: start: 20180314, end: 20180324
  5. DICODE [Concomitant]
     Indication: COUGH
     Route: 048
     Dates: start: 20180117
  6. ALECTINIB. [Suspect]
     Active Substance: ALECTINIB
     Dosage: DOSE REDUCED AND THEN INTERRUPTED
     Route: 048
     Dates: start: 20180201, end: 20180213
  7. APETROL ES [Concomitant]
     Indication: ASTHENIA
     Dosage: 650MG/5.2ML
     Route: 048
     Dates: start: 20171227
  8. ANYCOUGH [Concomitant]
     Active Substance: THEOBROMINE
     Indication: COUGH
     Route: 048
     Dates: start: 20171227
  9. ALPRAM [Concomitant]
     Active Substance: ALPRAZOLAM
     Indication: PROPHYLAXIS
     Route: 048
     Dates: start: 20180314
  10. METHYLON [Suspect]
     Active Substance: METHYLPREDNISOLONE
     Indication: PRODUCT USED FOR UNKNOWN INDICATION
     Route: 065

REACTIONS (5)
  - Dyspnoea [Recovered/Resolved]
  - Swelling face [Not Recovered/Not Resolved]
  - Tremor [Not Recovered/Not Resolved]
  - Dyspnoea exertional [Not Recovered/Not Resolved]
  - Musculoskeletal chest pain [Not Recovered/Not Resolved]

NARRATIVE: CASE EVENT DATE: 20180201
